FAERS Safety Report 25873901 (Version 1)
Quarter: 2025Q4

REPORT INFORMATION
  Report Type: Spontaneous
  Country: EU (occurrence: EU)
  Receive Date: 20251002
  Receipt Date: 20251002
  Transmission Date: 20260118
  Serious: Yes (Death)
  Sender: RANBAXY
  Company Number: EU-LRB-01064662

PATIENT
  Age: 68 Year
  Sex: Male
  Weight: 69.9 kg

DRUGS (2)
  1. GEMCITABINE [Suspect]
     Active Substance: GEMCITABINE
     Indication: Transitional cell carcinoma metastatic
     Dosage: 1X GIFT ON 7-5 EN 1X GIFT ON 14-5
     Route: 065
     Dates: start: 20250507
  2. CARBOPLATIN [Suspect]
     Active Substance: CARBOPLATIN
     Indication: Transitional cell carcinoma metastatic
     Dosage: 1 X GIFT ON 7-5
     Route: 065
     Dates: start: 20250507

REACTIONS (4)
  - Neutropenia [Fatal]
  - Thrombocytopenia [Fatal]
  - Sepsis [Fatal]
  - Staphylococcal infection [Fatal]
